FAERS Safety Report 8193715 (Version 3)
Quarter: 2019Q4

REPORT INFORMATION
  Report Type: Spontaneous
  Country: BR (occurrence: BR)
  Receive Date: 20111021
  Receipt Date: 20191211
  Transmission Date: 20200122
  Serious: Yes (Other)
  Sender: FDA-Public Use
  Company Number: BR-AMGEN-US355630

PATIENT
  Age: 44 Year
  Sex: Male
  Weight: 36.28 kg

DRUGS (6)
  1. ENBREL [Suspect]
     Active Substance: ETANERCEPT
     Dosage: EVERY 15 DAYS
     Route: 065
  2. HIGROTONA [Concomitant]
     Active Substance: CHLORTHALIDONE
     Dosage: UNK
  3. OMEPRAZOLE. [Concomitant]
     Active Substance: OMEPRAZOLE
     Dosage: 20 MILLIGRAM
  4. ENBREL [Suspect]
     Active Substance: ETANERCEPT
     Indication: PSORIATIC ARTHROPATHY
     Dosage: 25 MG, 2X/WEEK
     Route: 058
     Dates: start: 2007
  5. SERTRALINE [Concomitant]
     Active Substance: SERTRALINE HYDROCHLORIDE
     Dosage: UNK
  6. AMLODIPINE [Concomitant]
     Active Substance: AMLODIPINE BESYLATE
     Dosage: UNK
     Route: 065

REACTIONS (9)
  - Delirium [Recovered/Resolved]
  - Nightmare [Unknown]
  - Insomnia [Unknown]
  - Anxiety [Unknown]
  - Off label use [Unknown]
  - Feeling abnormal [Unknown]
  - Dizziness [Unknown]
  - Arrhythmia [Recovered/Resolved]
  - Labyrinthitis [Unknown]

NARRATIVE: CASE EVENT DATE: 20090625
